FAERS Safety Report 17900710 (Version 1)
Quarter: 2020Q2

REPORT INFORMATION
  Report Type: Spontaneous
  Country: US (occurrence: US)
  Receive Date: 20200616
  Receipt Date: 20200616
  Transmission Date: 20200714
  Serious: No
  Sender: FDA-Public Use
  Company Number: None

PATIENT
  Age: 48 Year
  Sex: Male

DRUGS (1)
  1. SUTENT [Suspect]
     Active Substance: SUNITINIB MALATE
     Indication: GASTROINTESTINAL STROMAL TUMOUR
     Route: 048
     Dates: start: 202005

REACTIONS (5)
  - Liver disorder [None]
  - Stent placement [None]
  - Neoplasm progression [None]
  - Asthenia [None]
  - Feeding disorder [None]

NARRATIVE: CASE EVENT DATE: 20200608
